FAERS Safety Report 7333599-6 (Version None)
Quarter: 2011Q1

REPORT INFORMATION
  Report Type: 
  Country: None (occurrence: None)
  Receive Date: 20110304
  Receipt Date: 20110303
  Transmission Date: 20110831
  Serious: Yes (Death)
  Sender: FDA-Public Use
  Company Number: US-AMGEN-USASP2011012248

PATIENT
  Age: 81 Year
  Sex: Male
  Weight: 65.76 kg

DRUGS (8)
  1. ARANESP [Suspect]
     Indication: ANAEMIA
  2. QUINIDINE GLUCONATE [Concomitant]
  3. COUMADIN [Concomitant]
  4. FOLIC ACID [Concomitant]
  5. NPLATE [Suspect]
     Indication: IDIOPATHIC THROMBOCYTOPENIC PURPURA
     Dates: start: 20100617
  6. NEPHROCAPS [Concomitant]
  7. AMIODARONE [Concomitant]
  8. PRILOSEC [Concomitant]

REACTIONS (1)
  - DEATH [None]
